FAERS Safety Report 4684677-1 (Version None)
Quarter: 2005Q2

REPORT INFORMATION
  Report Type: 
  Country: None (occurrence: None)
  Receive Date: 20050607
  Receipt Date: 20050517
  Transmission Date: 20051028
  Serious: Yes (Hospitalization, Other)
  Sender: FDA-Public Use
  Company Number: CA-MERCK-0505CAN00134

PATIENT
  Age: 90 Year
  Sex: Female

DRUGS (9)
  1. FOSAMAX [Suspect]
     Indication: OSTEOPOROSIS
     Route: 048
     Dates: start: 20050322
  2. DOCUSATE SODIUM [Concomitant]
     Indication: CONSTIPATION
     Route: 065
     Dates: start: 20000101
  3. ACETAMINOPHEN [Concomitant]
     Indication: ARTHRITIS
     Route: 065
     Dates: start: 19980101
  4. LOSARTAN POTASSIUM [Concomitant]
     Indication: HYPERTENSION
     Route: 048
     Dates: start: 20020101
  5. OXYBUTYNIN [Concomitant]
     Indication: BLADDER SPASM
     Route: 065
     Dates: start: 19980101
  6. CHOLECALCIFEROL [Concomitant]
     Indication: OSTEOPOROSIS
     Route: 065
     Dates: start: 20050322
  7. CALCIUM (UNSPECIFIED) [Concomitant]
     Indication: OSTEOPOROSIS
     Route: 065
     Dates: start: 20050322
  8. PANTOPRAZOLE SODIUM [Concomitant]
     Indication: ABDOMINAL PAIN UPPER
     Route: 065
     Dates: start: 20050424, end: 20050508
  9. PREDNISONE [Concomitant]
     Indication: OSTEOARTHRITIS
     Route: 065
     Dates: start: 20050424, end: 20050508

REACTIONS (6)
  - ANGINA UNSTABLE [None]
  - ARTHRITIS [None]
  - BLOOD PRESSURE INCREASED [None]
  - RENAL FAILURE ACUTE [None]
  - SINUS TACHYCARDIA [None]
  - VERTIGO [None]
